FAERS Safety Report 23814719 (Version 2)
Quarter: 2024Q2

REPORT INFORMATION
  Report Type: Spontaneous
  Country: US (occurrence: US)
  Receive Date: 20240503
  Receipt Date: 20240524
  Transmission Date: 20240716
  Serious: Yes (Hospitalization, Other)
  Sender: FDA-Public Use
  Company Number: US-REGENERON PHARMACEUTICALS, INC.-2024-066866

PATIENT
  Sex: Female

DRUGS (13)
  1. EYLEA [Suspect]
     Active Substance: AFLIBERCEPT
     Indication: Neovascular age-related macular degeneration
     Dosage: 2 MG, EVERY 3 MONTHS AND MONTHLY INTO BOTH EYES (EYE SPECIFIC FREQUENCY UNKNOWN) (FORMULATION: UNKNO
     Dates: start: 202107
  2. EYLEA [Suspect]
     Active Substance: AFLIBERCEPT
     Dosage: 2 MG, EVERY 3 MONTHS AND MONTHLY INTO BOTH EYES (EYE SPECIFIC FREQUENCY UNKNOWN) (FORMULATION: UNKNO
     Dates: start: 20240103, end: 20240103
  3. EYLEA [Suspect]
     Active Substance: AFLIBERCEPT
     Dosage: 2 MG, EVERY 3 MONTHS AND MONTHLY INTO BOTH EYES (EYE SPECIFIC FREQUENCY UNKNOWN) (FORMULATION: UNKNO
     Dates: start: 20240116, end: 20240116
  4. EYLEA [Suspect]
     Active Substance: AFLIBERCEPT
     Dosage: 2 MG, EVERY 3 MONTHS AND MONTHLY INTO BOTH EYES (EYE SPECIFIC FREQUENCY UNKNOWN) (FORMULATION: UNKNO
     Dates: start: 20240220, end: 20240220
  5. FUROSEMIDE [Concomitant]
     Active Substance: FUROSEMIDE
     Indication: Product used for unknown indication
     Dosage: 20 MG, DAILY
  6. ALPRAZOLAM [Concomitant]
     Active Substance: ALPRAZOLAM
     Indication: Product used for unknown indication
     Dosage: 0.5 MG TWICE A DAY AS NEEDED (^SHE JUST TAKES IT AT BEDTIME^)
  7. METOPROLOL [Concomitant]
     Active Substance: METOPROLOL
     Indication: Product used for unknown indication
     Dosage: 25 MG
  8. METHENAMINE HIPPURATE [Concomitant]
     Active Substance: METHENAMINE HIPPURATE
     Indication: Bladder disorder
     Dosage: 1 GRAM TWO DAILY LOW DOSE ANTIBIOTIC FOR HER BLADDER
  9. TROSPIUM [Concomitant]
     Active Substance: TROSPIUM
     Indication: Bladder disorder
     Dosage: 20 MG FOR BLADDER
  10. OXYCODONE AND ACETAMINOPHEN [Concomitant]
     Active Substance: ACETAMINOPHEN\OXYCODONE HYDROCHLORIDE
     Indication: Product used for unknown indication
     Dosage: 5/325 EVERY 6 HOURS AS NEEDED
  11. SENNA PLUS [SENNA ALEXANDRINA] [Concomitant]
     Indication: Constipation
  12. MONTELUKAST [Concomitant]
     Active Substance: MONTELUKAST SODIUM
     Indication: Product used for unknown indication
     Dosage: 10 MG
  13. ELIQUIS [Concomitant]
     Active Substance: APIXABAN
     Indication: Product used for unknown indication
     Dosage: 5 MG TWICE DAILY

REACTIONS (10)
  - Lung cancer metastatic [Not Recovered/Not Resolved]
  - Sepsis [Unknown]
  - Hospice care [Unknown]
  - Root canal infection [Unknown]
  - Urinary tract infection [Not Recovered/Not Resolved]
  - Visual impairment [Unknown]
  - Colour blindness [Unknown]
  - Foreign body sensation in eyes [Unknown]
  - Eye oedema [Unknown]
  - Product dose omission issue [Unknown]

NARRATIVE: CASE EVENT DATE: 20230101
